FAERS Safety Report 10012650 (Version 2)
Quarter: 2014Q3

REPORT INFORMATION
  Report Type: Report from Study
  Country: JP (occurrence: JP)
  Receive Date: 20140314
  Receipt Date: 20140829
  Transmission Date: 20150326
  Serious: Yes (Disabling)
  Sender: FDA-Public Use
  Company Number: JP-ALLERGAN-1405006US

PATIENT
  Age: 64 Year
  Sex: Male

DRUGS (7)
  1. SANPILO [Concomitant]
     Dosage: UNK
     Route: 047
     Dates: start: 20120229
  2. DIAMOX SEQUELS [Concomitant]
     Active Substance: ACETAZOLAMIDE
     Dosage: UNK
     Dates: start: 20120229, end: 20120229
  3. AZOPT [Concomitant]
     Active Substance: BRINZOLAMIDE
     Dosage: UNK
     Route: 047
     Dates: start: 20120117, end: 20120227
  4. BIMATOPROST 0.03% SOL-EYE (9106X) [Suspect]
     Active Substance: BIMATOPROST
     Indication: EXFOLIATION GLAUCOMA
     Dosage: 1 GTT IN RIGHT EYE AT BEDTIME
     Route: 047
     Dates: start: 20120314, end: 20120530
  5. CRAVIT [Concomitant]
     Active Substance: LEVOFLOXACIN
     Dosage: UNK
     Route: 047
     Dates: start: 20120229, end: 20120530
  6. RINDERON A [Concomitant]
     Active Substance: BETAMETHASONE SODIUM PHOSPHATE\NEOMYCIN SULFATE
     Dosage: UNK
     Dates: start: 20120229, end: 20120307
  7. DICLOD [Concomitant]
     Dosage: UNK
     Route: 047
     Dates: start: 20120224, end: 20120314

REACTIONS (2)
  - Corneal erosion [Recovered/Resolved]
  - Intraocular pressure increased [Recovering/Resolving]

NARRATIVE: CASE EVENT DATE: 20120425
